FAERS Safety Report 15380754 (Version 2)
Quarter: 2018Q4

REPORT INFORMATION
  Report Type: Spontaneous
  Country: US (occurrence: US)
  Receive Date: 20180913
  Receipt Date: 20181026
  Transmission Date: 20190204
  Serious: Yes (Death, Other)
  Sender: FDA-Public Use
  Company Number: US-INCYTE CORPORATION-2018IN009259

PATIENT

DRUGS (1)
  1. JAKAFI [Suspect]
     Active Substance: RUXOLITINIB
     Indication: MYELOFIBROSIS
     Dosage: 20MG QAM, 10MG QPM
     Route: 048
     Dates: start: 20180130

REACTIONS (2)
  - Oesophageal varices haemorrhage [Fatal]
  - Haemoglobin decreased [Unknown]
